FAERS Safety Report 5001736-4 (Version None)
Quarter: 2006Q2

REPORT INFORMATION
  Report Type: 
  Country: None (occurrence: None)
  Receive Date: 20060512
  Receipt Date: 20060512
  Transmission Date: 20061013
  Serious: No
  Sender: FDA-Public Use
  Company Number: None

PATIENT
  Age: 52 Year
  Sex: Female
  Weight: 68.0396 kg

DRUGS (2)
  1. ZICAM SPRAY [Suspect]
     Indication: HYPERSENSITIVITY
     Dosage: A COUPLE TIMES A DAY
     Dates: start: 20020115, end: 20060315
  2. ZICAM SWABS  CHILDREN'S STRENGTH [Suspect]
     Indication: NASOPHARYNGITIS

REACTIONS (1)
  - HYPOSMIA [None]
